FAERS Safety Report 5206964-0 (Version None)
Quarter: 2007Q1

REPORT INFORMATION
  Report Type: 
  Country: None (occurrence: None)
  Receive Date: 20070110
  Receipt Date: 20061228
  Transmission Date: 20070707
  Serious: No
  Sender: FDA-Public Use
  Company Number: TPA2006A01922

PATIENT
  Age: 61 Year
  Sex: Male
  Weight: 122.0176 kg

DRUGS (10)
  1. ACTOS [Suspect]
     Indication: DIABETES MELLITUS
     Dosage: 45 MG, 14 TABLETS
     Dates: start: 20060901
  2. LANTUS [Concomitant]
  3. LIPITOR [Concomitant]
  4. ZETIA [Concomitant]
  5. METFORMIN HCL [Concomitant]
  6. TOPROL-XL [Concomitant]
  7. FUROSEMIDE [Concomitant]
  8. ACCUPRIL [Concomitant]
  9. PAXIL [Concomitant]
  10. QUININE SULFATE [Concomitant]

REACTIONS (2)
  - ACCIDENTAL EXPOSURE [None]
  - INCORRECT DOSE ADMINISTERED [None]
